FAERS Safety Report 19012368 (Version 1)
Quarter: 2021Q1

REPORT INFORMATION
  Report Type: Spontaneous
  Country: US (occurrence: US)
  Receive Date: 20210316
  Receipt Date: 20210316
  Transmission Date: 20210420
  Serious: Yes (Other)
  Sender: FDA-Public Use
  Company Number: US-ASTRAZENECA-2021A130640

PATIENT
  Age: 77 Year
  Sex: Male
  Weight: 54.4 kg

DRUGS (3)
  1. SEROQUEL [Suspect]
     Active Substance: QUETIAPINE FUMARATE
     Indication: DEMENTIA
     Route: 048
  2. KLONOPIN [Concomitant]
     Active Substance: CLONAZEPAM
     Indication: ALCOHOL USE
     Dosage: UNKNOWN
     Route: 048
  3. DIAZEPAM. [Concomitant]
     Active Substance: DIAZEPAM
     Dosage: UNKNOWN
     Route: 048

REACTIONS (4)
  - Haemoglobin decreased [Unknown]
  - Decubitus ulcer [Unknown]
  - Apallic syndrome [Unknown]
  - Cerebral disorder [Unknown]
